FAERS Safety Report 7150384-9 (Version None)
Quarter: 2010Q4

REPORT INFORMATION
  Report Type: 
  Country: None (occurrence: None)
  Receive Date: 20101210
  Receipt Date: 20101202
  Transmission Date: 20110411
  Serious: Yes (Hospitalization)
  Sender: FDA-Public Use
  Company Number: FR-PFIZER INC-FR-WYE-G04842409

PATIENT
  Age: 7 Year
  Sex: Male
  Weight: 22 kg

DRUGS (4)
  1. IBUPROFEN (ADVIL) [Suspect]
     Indication: LARYNGITIS
     Dosage: UNK
     Route: 048
     Dates: start: 20090926, end: 20091004
  2. THIOVALONE [Suspect]
     Indication: LARYNGITIS
     Dosage: UNK
     Route: 048
     Dates: start: 20090926, end: 20091004
  3. DOLIPRANE [Suspect]
     Indication: LARYNGITIS
     Dosage: UNK
     Route: 048
     Dates: start: 20090926, end: 20091004
  4. AMOXICILLIN [Concomitant]
     Dosage: UNK
     Route: 048
     Dates: start: 20090926, end: 20091004

REACTIONS (6)
  - DERMATITIS BULLOUS [None]
  - FEEDING DISORDER [None]
  - LYMPHOCYTE COUNT DECREASED [None]
  - STAPHYLOCOCCAL INFECTION [None]
  - STEVENS-JOHNSON SYNDROME [None]
  - WHITE BLOOD CELL COUNT INCREASED [None]
